FAERS Safety Report 5128537-0 (Version None)
Quarter: 2006Q4

REPORT INFORMATION
  Report Type: 
  Country: None (occurrence: None)
  Receive Date: 20061011
  Receipt Date: 20061002
  Transmission Date: 20070319
  Serious: Yes (Hospitalization, Other)
  Sender: FDA-Public Use
  Company Number: US-2006-003359

PATIENT
  Age: 38 Year
  Sex: Female

DRUGS (11)
  1. BETASERON [Suspect]
     Indication: MULTIPLE SCLEROSIS
     Dosage: 8 MIU, EVERY 2D, SUBCUTANEOUS
     Route: 058
     Dates: start: 20050919, end: 20060301
  2. AMANTADINE HCL [Concomitant]
  3. CITALOPRAM HYDROBROMIDE [Concomitant]
  4. MIRAPEX  BOEHINGER INGELHEIM  (PRAMIPEXOLE DIHYDROCHLORIDE) [Concomitant]
  5. MULTIVITAMINS (PANTHENOL, RETINOL) [Concomitant]
  6. IRON (IRON) [Concomitant]
  7. VITAMIN B COMPLEX CAP [Concomitant]
  8. FLAXSEED OIL (LINUM USITATISSIMUM  SEED OIL) [Concomitant]
  9. GLUCOTROL [Concomitant]
  10. TYLENOL [Concomitant]
  11. BENADRYL   WARNER-LAMBERT  (DIPHENHYDRAMINE HYDROCHLORIDE) [Concomitant]

REACTIONS (9)
  - ANAEMIA [None]
  - CONDITION AGGRAVATED [None]
  - DIPLOPIA [None]
  - FEELING ABNORMAL [None]
  - MENORRHAGIA [None]
  - MULTIPLE SCLEROSIS [None]
  - OLIGOMENORRHOEA [None]
  - VAGINAL HAEMORRHAGE [None]
  - VISION BLURRED [None]
